FAERS Safety Report 20149109 (Version 1)
Quarter: 2021Q4

REPORT INFORMATION
  Report Type: Spontaneous
  Country: ZA (occurrence: ZA)
  Receive Date: 20211204
  Receipt Date: 20211204
  Transmission Date: 20220303
  Serious: Yes (Other)
  Sender: FDA-Public Use
  Company Number: ZA-NOVARTISPH-NVSC2021ZA273589

PATIENT
  Sex: Female

DRUGS (2)
  1. ACLASTA [Suspect]
     Active Substance: ZOLEDRONIC ACID
     Indication: Osteoporosis
     Dosage: UNK, Q12MO (5MG/100ML)
     Route: 041
     Dates: start: 2019
  2. ACLASTA [Suspect]
     Active Substance: ZOLEDRONIC ACID
     Dosage: UNK, Q12MO (5MG/100ML)
     Route: 041
     Dates: start: 2021

REACTIONS (2)
  - Musculoskeletal discomfort [Not Recovered/Not Resolved]
  - Spinal disorder [Not Recovered/Not Resolved]
